FAERS Safety Report 9208813 (Version 2)
Quarter: 2013Q2

REPORT INFORMATION
  Report Type: Spontaneous
  Country: US (occurrence: US)
  Receive Date: 20130404
  Receipt Date: 20130503
  Transmission Date: 20140414
  Serious: No
  Sender: FDA-Public Use
  Company Number: US-PFIZER INC-2013101770

PATIENT
  Age: 66 Year
  Sex: Female
  Weight: 72.56 kg

DRUGS (5)
  1. NORVASC [Suspect]
     Indication: HYPERTENSION
     Dosage: 5 MG, 1X/DAY
     Dates: end: 20130314
  2. NORVASC [Suspect]
     Dosage: 5 MG, 2X/DAY
     Dates: start: 20130315
  3. NORVASC [Suspect]
     Dosage: 5 MG, 1X/DAY
     Dates: start: 20130326
  4. NORVASC [Suspect]
     Dosage: 10 MG, 1X/DAY
     Dates: start: 2013
  5. NORVASC [Suspect]
     Dosage: UNK

REACTIONS (4)
  - Blood pressure inadequately controlled [Unknown]
  - Local swelling [Unknown]
  - Abdominal pain upper [Recovering/Resolving]
  - Dyspepsia [Recovering/Resolving]
